FAERS Safety Report 22081077 (Version 3)
Quarter: 2023Q2

REPORT INFORMATION
  Report Type: Spontaneous
  Country: US (occurrence: US)
  Receive Date: 20230309
  Receipt Date: 20230508
  Transmission Date: 20230722
  Serious: No
  Sender: FDA-Public Use
  Company Number: US-Blueprint Medicines Corporation-936

PATIENT
  Sex: Male

DRUGS (5)
  1. AYVAKIT [Suspect]
     Active Substance: AVAPRITINIB
     Indication: Brain neoplasm malignant
     Dosage: 250MG DAILY ON ODD DAYS OF EACH WEEK, 200 MG ON EVEN DAYS EACH WEEK
     Route: 065
  2. AYVAKIT [Suspect]
     Active Substance: AVAPRITINIB
     Dosage: 250MG DAILY (ODD DAYS), 200MG DAILY (EVEN DAYS)
     Route: 065
  3. AYVAKIT [Suspect]
     Active Substance: AVAPRITINIB
     Dosage: 250MG DAILY (ODD DAYS), 200MG DAILY (EVEN DAYS)
     Route: 048
     Dates: start: 20221003
  4. AYVAKIT [Suspect]
     Active Substance: AVAPRITINIB
     Dosage: 250MG DAILY (ODD DAYS), 200MG DAILY (EVEN DAYS)
     Route: 065
     Dates: start: 20221003
  5. AYVAKIT [Suspect]
     Active Substance: AVAPRITINIB
     Dosage: 250MG DAILY (ODD DAYS), 200MG DAILY (EVEN DAYS)
     Route: 065
     Dates: start: 20221003

REACTIONS (12)
  - Contusion [Unknown]
  - Joint swelling [Unknown]
  - Mucosal haemorrhage [Unknown]
  - Slow speech [Unknown]
  - Cognitive disorder [Unknown]
  - Weight decreased [Unknown]
  - Neutrophil count decreased [Unknown]
  - Platelet count decreased [Unknown]
  - Memory impairment [Unknown]
  - Disturbance in attention [Unknown]
  - Fatigue [Unknown]
  - Off label use [Unknown]
